FAERS Safety Report 5251796-0 (Version None)
Quarter: 2007Q1

REPORT INFORMATION
  Report Type: 
  Country: None (occurrence: None)
  Receive Date: 20070228
  Receipt Date: 20070218
  Transmission Date: 20070707
  Serious: Yes (Other)
  Sender: FDA-Public Use
  Company Number: US-PFIZER INC-2007013706

PATIENT
  Sex: Female
  Weight: 58.1 kg

DRUGS (7)
  1. CHANTIX [Suspect]
     Indication: SMOKING CESSATION THERAPY
     Route: 048
  2. IMITREX [Concomitant]
  3. FIORINAL [Concomitant]
  4. FLONASE [Concomitant]
  5. PROZAC [Concomitant]
  6. FOSAMAX [Concomitant]
  7. PREMARIN [Concomitant]

REACTIONS (7)
  - ERYTHEMA [None]
  - INSOMNIA [None]
  - MIGRAINE [None]
  - NAUSEA [None]
  - SALIVARY HYPERSECRETION [None]
  - VENOUS BRUIT [None]
  - VOMITING [None]
